FAERS Safety Report 5631271-1 (Version None)
Quarter: 2008Q1

REPORT INFORMATION
  Report Type: 
  Country: None (occurrence: None)
  Receive Date: 20080219
  Receipt Date: 20080214
  Transmission Date: 20080703
  Serious: Yes (Hospitalization)
  Sender: FDA-Public Use
  Company Number: JP-ALLERGAN-0801778US

PATIENT
  Sex: Male

DRUGS (6)
  1. BRIMONIDINE 0.1% SOL W/ PURITE [Suspect]
     Indication: OCULAR HYPERTENSION
     Dosage: 2 GTT, UNK
     Route: 031
     Dates: start: 20080116, end: 20080128
  2. LATANOPROST [Concomitant]
     Dates: start: 20070409, end: 20080128
  3. LATANOPROST [Concomitant]
     Dates: start: 20080201
  4. FLUOROURACIL [Concomitant]
     Dates: start: 20070730
  5. UNKNOWNDRUG [Concomitant]
     Dates: start: 20071101
  6. CYANOCOBALAMIN [Concomitant]
     Dates: start: 20080111

REACTIONS (3)
  - DERMATITIS [None]
  - HORDEOLUM [None]
  - VERTIGO [None]
